FAERS Safety Report 8011776 (Version 5)
Quarter: 2013Q4

REPORT INFORMATION
  Report Type: Spontaneous
  Country: US (occurrence: US)
  Receive Date: 20110628
  Receipt Date: 20131119
  Transmission Date: 20140711
  Serious: Yes (Hospitalization, Other)
  Sender: FDA-Public Use
  Company Number: US-BAYER-2011-052523

PATIENT
  Age: 22 Year
  Sex: Female
  Weight: 82 kg

DRUGS (5)
  1. YAZ [Suspect]
     Indication: PRODUCT USED FOR UNKNOWN INDICATION
     Dosage: UNK
     Route: 048
     Dates: start: 2009
  2. LORTAB [Concomitant]
  3. IBUPROFEN [Concomitant]
  4. DOXYCYCLINE [Concomitant]
     Dosage: 100 MG, UNK
  5. TRAMADOL HCL CF [Concomitant]
     Dosage: 50 MG, UNK

REACTIONS (4)
  - Cholelithiasis [None]
  - Cholecystitis chronic [None]
  - Injury [None]
  - Pain [None]
